FAERS Safety Report 9403157 (Version 4)
Quarter: 2013Q3

REPORT INFORMATION
  Report Type: Spontaneous
  Country: JP (occurrence: JP)
  Receive Date: 20130716
  Receipt Date: 20130829
  Transmission Date: 20140515
  Serious: Yes (Hospitalization)
  Sender: FDA-Public Use
  Company Number: JP-GLAXOSMITHKLINE-B0907614A

PATIENT
  Age: 30 Year
  Sex: Female

DRUGS (4)
  1. LAMICTAL [Suspect]
     Indication: EPILEPSY
     Dosage: 50MG PER DAY
     Route: 048
     Dates: start: 20130620, end: 20130702
  2. E KEPPRA [Concomitant]
     Indication: EPILEPSY
     Dosage: 750MG TWICE PER DAY
     Route: 048
     Dates: start: 20120907, end: 20130716
  3. MYSLEE [Concomitant]
     Indication: INSOMNIA
     Dosage: 5MG PER DAY
     Route: 048
     Dates: start: 20130227
  4. DEPAS [Concomitant]
     Indication: ANXIETY DISORDER
     Route: 048
     Dates: start: 20130206

REACTIONS (7)
  - Drug reaction with eosinophilia and systemic symptoms [Not Recovered/Not Resolved]
  - Measles [Unknown]
  - Skin disorder [Recovered/Resolved]
  - Rash [Not Recovered/Not Resolved]
  - Rubella [Unknown]
  - Drug eruption [Unknown]
  - Viral rash [Unknown]
